FAERS Safety Report 5466714-X (Version None)
Quarter: 2007Q3

REPORT INFORMATION
  Report Type: 
  Country: None (occurrence: None)
  Receive Date: 20070920
  Receipt Date: 20070911
  Transmission Date: 20080115
  Serious: Yes (Death)
  Sender: FDA-Public Use
  Company Number: 062-20785-07071024

PATIENT
  Age: 73 Year
  Sex: Male

DRUGS (14)
  1. THALIDOMIDE [Suspect]
     Indication: PLASMACYTOMA
     Dosage: 100 MG, 2 IN 1 D, ORAL
     Route: 048
     Dates: start: 20061201
  2. OXYCODON (OXYCODONE HYDROCHLORIDE) (60 MILLIGRAM) [Concomitant]
  3. BISOPROLOL (BISOPROLOL) (5 MILLIGRAM) [Concomitant]
  4. LEVOTHYROXINE (LEVOTHYROXINE) (100 MICROGRAM) [Concomitant]
  5. MACROGOL (MACROGOL) [Concomitant]
  6. ALLOPURINOL (ALLOPURINOL) (100 MILLIGRAM) [Concomitant]
  7. TORSEMIDE [Concomitant]
  8. SIMVASTATIN (SIMVASTATIN) (20 MILLIGRAM) [Concomitant]
  9. RAMIPRIL (RAMIPRIL) (5 MILLIGRAM) [Concomitant]
  10. HYDROCHLOROTHIAZIDE (HYDROCHLOROTHIAZIDE) (25 MILLIGRAM) [Concomitant]
  11. PANTOPRAZOLE (PANTOPRAZOLE) (40 MILLIGRAM) [Concomitant]
  12. HEPARIN [Concomitant]
  13. MELPHALAN (MELPHALAN) [Concomitant]
  14. PREDNISONE TAB [Concomitant]

REACTIONS (3)
  - ANURIA [None]
  - AZOTAEMIA [None]
  - CARDIAC ARREST [None]
